FAERS Safety Report 24586072 (Version 1)
Quarter: 2024Q4

REPORT INFORMATION
  Report Type: Spontaneous
  Country: US (occurrence: US)
  Receive Date: 20241106
  Receipt Date: 20241106
  Transmission Date: 20250115
  Serious: Yes (Other)
  Sender: MERCK
  Company Number: US-009507513-2411USA001172

PATIENT
  Sex: Male

DRUGS (3)
  1. KEYTRUDA [Suspect]
     Active Substance: PEMBROLIZUMAB
     Indication: Gastric cancer
     Dosage: 400 MILLIGRAM, EVERY 6 WEEKS
     Route: 042
     Dates: start: 202311, end: 202311
  2. KEYTRUDA [Suspect]
     Active Substance: PEMBROLIZUMAB
     Dosage: 400 MILLIGRAM, EVERY 6 WEEKS
     Route: 042
     Dates: start: 202409, end: 202409
  3. VITAMINS NOS [Concomitant]
     Active Substance: VITAMINS
     Dosage: UNK

REACTIONS (1)
  - Malignant neoplasm progression [Not Recovered/Not Resolved]
